FAERS Safety Report 9152774 (Version 1)
Quarter: 2013Q1

REPORT INFORMATION
  Report Type: Spontaneous
  Country: BR (occurrence: BR)
  Receive Date: 20130308
  Receipt Date: 20130308
  Transmission Date: 20140127
  Serious: Yes (Life-Threatening, Hospitalization)
  Sender: FDA-Public Use
  Company Number: BR-B.I. PHARMACEUTICALS,INC./RIDGEFIELD-2013-BR-00188BR

PATIENT
  Sex: Male
  Weight: 107 kg

DRUGS (6)
  1. SPIRIVA RESPIMAT [Suspect]
     Indication: EMPHYSEMA
     Dosage: 5 MCG
     Route: 055
     Dates: start: 2000
  2. ALENIA [Concomitant]
     Indication: EMPHYSEMA
  3. ENALAPRIL [Concomitant]
     Indication: HYPERTENSION
  4. AMIODARONA [Concomitant]
     Indication: ARRHYTHMIA
  5. HIDROCLOROTIAZIDA [Concomitant]
     Indication: HYPERTENSION
  6. GLUCAGON [Concomitant]
     Indication: DIABETES MELLITUS

REACTIONS (6)
  - Cardiac arrest [Recovered/Resolved]
  - Cardiac arrest [Recovered/Resolved]
  - Pneumonia [Recovered/Resolved]
  - Cough [Not Recovered/Not Resolved]
  - Lung disorder [Recovered/Resolved]
  - Weight decreased [Recovered/Resolved]
